FAERS Safety Report 9066109 (Version 1)
Quarter: 2013Q1

REPORT INFORMATION
  Report Type: Report from Study
  Country: US (occurrence: US)
  Receive Date: 20130131
  Receipt Date: 20130131
  Transmission Date: 20140127
  Serious: No
  Sender: FDA-Public Use
  Company Number: US-ABBOTT-12P-163-1016906-00

PATIENT
  Sex: Male

DRUGS (10)
  1. HUMIRA [Suspect]
     Indication: RHEUMATOID ARTHRITIS
     Dates: start: 20120518
  2. VITAMIN D NOS [Concomitant]
     Indication: ILL-DEFINED DISORDER
  3. LISINOPRIL [Concomitant]
     Indication: HYPERTENSION
  4. FISH OIL [Concomitant]
     Indication: SUPPLEMENTATION THERAPY
  5. CO-Q-10 [Concomitant]
     Indication: SUPPLEMENTATION THERAPY
  6. CLARINEX D [Concomitant]
     Indication: HYPERSENSITIVITY
  7. CALCIUM 600 [Concomitant]
     Indication: SUPPLEMENTATION THERAPY
  8. METHOTREXATE [Concomitant]
     Indication: RHEUMATOID ARTHRITIS
  9. PREDNISONE [Concomitant]
     Indication: RHEUMATOID ARTHRITIS
  10. FLOMAX [Concomitant]
     Indication: PRODUCT USED FOR UNKNOWN INDICATION

REACTIONS (1)
  - Cough [Not Recovered/Not Resolved]
